FAERS Safety Report 8089212-6 (Version None)
Quarter: 2012Q1

REPORT INFORMATION
  Report Type: 
  Country: None (occurrence: None)
  Receive Date: 20120128
  Receipt Date: 20110628
  Transmission Date: 20120608
  Serious: No
  Sender: FDA-Public Use
  Company Number: US-ABBOTT-11P-163-0834681-00

PATIENT
  Sex: Female
  Weight: 71.278 kg

DRUGS (5)
  1. HUMIRA [Suspect]
     Indication: RHEUMATOID ARTHRITIS
     Route: 058
     Dates: start: 20110624
  2. NEBULIZER [Concomitant]
     Indication: ASTHMA
  3. COUMADIN [Concomitant]
     Indication: THROMBOSIS
  4. INHALER [Concomitant]
     Indication: ASTHMA
  5. LEFLUNOMIDE [Concomitant]
     Indication: RHEUMATOID ARTHRITIS

REACTIONS (1)
  - INJECTION SITE PAIN [None]
